FAERS Safety Report 5638892-0 (Version None)
Quarter: 2008Q1

REPORT INFORMATION
  Report Type: 
  Country: None (occurrence: None)
  Receive Date: 20080226
  Receipt Date: 20080212
  Transmission Date: 20080703
  Serious: Yes (Other)
  Sender: FDA-Public Use
  Company Number: US-BAYER-200810618BCC

PATIENT
  Age: 49 Year
  Sex: Female
  Weight: 76 kg

DRUGS (9)
  1. ALEVE [Suspect]
     Indication: MYALGIA
     Dosage: UNIT DOSE: 220 MG
     Route: 048
     Dates: start: 20070101, end: 20070101
  2. LYRICA [Suspect]
     Indication: NEURALGIA
     Dosage: TOTAL DAILY DOSE: 25 MG
     Route: 048
     Dates: start: 20070101
  3. LYRICA [Suspect]
     Dosage: AS USED: 75 MG
     Route: 048
     Dates: start: 20070101
  4. OXYCONTIN [Concomitant]
  5. LORAZEPAM [Concomitant]
  6. SOMA [Concomitant]
  7. TRAZODONE HCL [Concomitant]
  8. ADVIL [Concomitant]
  9. ASPIRIN [Concomitant]
     Indication: HEADACHE

REACTIONS (15)
  - ARTHRALGIA [None]
  - BURNING SENSATION [None]
  - DIZZINESS [None]
  - GENERAL PHYSICAL HEALTH DETERIORATION [None]
  - HEADACHE [None]
  - MENTAL STATUS CHANGES [None]
  - MOOD ALTERED [None]
  - MUSCULAR WEAKNESS [None]
  - MYALGIA [None]
  - MYOPIA [None]
  - PAIN [None]
  - SOMNOLENCE [None]
  - VISION BLURRED [None]
  - VISUAL DISTURBANCE [None]
  - WEST NILE VIRAL INFECTION [None]
